FAERS Safety Report 7199973-6 (Version None)
Quarter: 2010Q4

REPORT INFORMATION
  Report Type: 
  Country: None (occurrence: None)
  Receive Date: 20101228
  Receipt Date: 20101207
  Transmission Date: 20110411
  Serious: No
  Sender: FDA-Public Use
  Company Number: US-PFIZER INC-2010166214

PATIENT
  Age: 60 Year
  Sex: Male

DRUGS (5)
  1. LIPITOR [Suspect]
     Dosage: UNK
  2. SYNTHROID [Concomitant]
  3. AMERGE [Concomitant]
  4. NAPROXEN [Concomitant]
  5. CIALIS [Concomitant]

REACTIONS (1)
  - MIGRAINE [None]
